FAERS Safety Report 4842109-4 (Version None)
Quarter: 2005Q4

REPORT INFORMATION
  Report Type: 
  Country: None (occurrence: None)
  Receive Date: 20051130
  Receipt Date: 20051107
  Transmission Date: 20060501
  Serious: Yes (Other)
  Sender: FDA-Public Use
  Company Number: US-MERCK-0511USA01138

PATIENT
  Age: 56 Year
  Sex: Male
  Weight: 98 kg

DRUGS (7)
  1. VIOXX [Suspect]
     Indication: ARTHRITIS
     Route: 048
     Dates: start: 19990101, end: 20000801
  2. VIOXX [Suspect]
     Indication: BACK PAIN
     Route: 048
     Dates: start: 19990101, end: 20000801
  3. PROZAC [Concomitant]
     Indication: DEPRESSION
     Route: 065
     Dates: start: 19930101
  4. XANAX [Concomitant]
     Indication: DEPRESSION
     Route: 065
     Dates: start: 19930101
  5. ATENOL [Concomitant]
     Route: 065
  6. LASIX [Concomitant]
     Route: 065
  7. BEXTRA [Concomitant]
     Route: 065

REACTIONS (1)
  - CEREBROVASCULAR ACCIDENT [None]
